FAERS Safety Report 5866713-X (Version None)
Quarter: 2008Q3

REPORT INFORMATION
  Report Type: 
  Country: None (occurrence: None)
  Receive Date: 20080828
  Receipt Date: 20080828
  Transmission Date: 20090109
  Serious: Yes (Hospitalization)
  Sender: FDA-Public Use
  Company Number: None

PATIENT
  Sex: Male
  Weight: 66.36 kg

DRUGS (1)
  1. ALLOPURINOL [Suspect]
     Indication: GOUT

REACTIONS (1)
  - STEVENS-JOHNSON SYNDROME [None]
